FAERS Safety Report 18396716 (Version 1)
Quarter: 2020Q4

REPORT INFORMATION
  Report Type: Other
  Country: US (occurrence: US)
  Receive Date: 20201019
  Receipt Date: 20201019
  Transmission Date: 20210114
  Serious: Yes (Life-Threatening, Other)
  Sender: FDA-Public Use
  Company Number: US-ROCHE-2692956

PATIENT
  Age: 64 Year
  Sex: Female
  Weight: 54.93 kg

DRUGS (1)
  1. OCREVUS [Suspect]
     Active Substance: OCRELIZUMAB
     Indication: MULTIPLE SCLEROSIS
     Dosage: YES
     Route: 042
     Dates: start: 201711

REACTIONS (10)
  - COVID-19 [Unknown]
  - Transient ischaemic attack [Unknown]
  - Asthenia [Unknown]
  - Feeling hot [Unknown]
  - Neck pain [Unknown]
  - Diet refusal [Unknown]
  - Feeling abnormal [Unknown]
  - Erythema [Unknown]
  - Multiple sclerosis relapse [Unknown]
  - Decreased appetite [Unknown]

NARRATIVE: CASE EVENT DATE: 20181130
